FAERS Safety Report 14840735 (Version 3)
Quarter: 2022Q2

REPORT INFORMATION
  Report Type: Spontaneous
  Country: US (occurrence: US)
  Receive Date: 20180503
  Receipt Date: 20220614
  Transmission Date: 20220720
  Serious: No
  Sender: FDA-Public Use
  Company Number: US-PFIZER INC-2018175766

PATIENT
  Age: 62 Year
  Sex: Male

DRUGS (1)
  1. ELELYSO [Suspect]
     Active Substance: TALIGLUCERASE ALFA
     Indication: Gaucher^s disease
     Dosage: 4800 IU, MONTHLY, (INTO THE VEIN EVERY 30 DAYS)
     Route: 042

REACTIONS (7)
  - Obesity [Unknown]
  - Condition aggravated [Unknown]
  - Hypertension [Recovering/Resolving]
  - Chitotriosidase increased [Unknown]
  - Blood acid phosphatase increased [Unknown]
  - Off label use [Unknown]
  - Product use issue [Unknown]
